FAERS Safety Report 9080779 (Version 1)
Quarter: 2013Q1

REPORT INFORMATION
  Report Type: Report from Study
  Country: US (occurrence: US)
  Receive Date: 20130130
  Receipt Date: 20130130
  Transmission Date: 20140127
  Serious: Yes (Other)
  Sender: FDA-Public Use
  Company Number: US-ABBOTT-12P-163-0957760-00

PATIENT
  Sex: Female
  Weight: 106.24 kg

DRUGS (5)
  1. HUMIRA 40 MG/0.8 ML PEN [Suspect]
     Indication: ARTHRITIS
     Route: 058
     Dates: start: 200907, end: 200911
  2. 6-MP [Concomitant]
     Indication: CROHN^S DISEASE
  3. POTASSIUM [Concomitant]
     Indication: MINERAL SUPPLEMENTATION
  4. B12 [Concomitant]
     Indication: VITAMIN SUPPLEMENTATION
  5. AMBIEN [Concomitant]
     Indication: SLEEP DISORDER

REACTIONS (1)
  - Crohn^s disease [Recovered/Resolved]
